FAERS Safety Report 4632164-9 (Version None)
Quarter: 2005Q2

REPORT INFORMATION
  Report Type: 
  Country: None (occurrence: None)
  Receive Date: 20050331
  Receipt Date: 20040329
  Transmission Date: 20051028
  Serious: Yes (Other)
  Sender: FDA-Public Use
  Company Number: 200411508BCC

PATIENT
  Age: 80 Year
  Sex: Female
  Weight: 67.586 kg

DRUGS (3)
  1. ALEVE [Suspect]
     Indication: ARTHRALGIA
     Dosage: 220 MG, QD, ORAL
     Route: 048
     Dates: start: 20040322
  2. ALEVE [Suspect]
     Indication: PAIN IN EXTREMITY
     Dosage: 220 MG, QD, ORAL
     Route: 048
     Dates: start: 20040322
  3. ATENOLOL [Concomitant]

REACTIONS (5)
  - DYSARTHRIA [None]
  - HYPERSENSITIVITY [None]
  - OEDEMA PERIPHERAL [None]
  - SWELLING FACE [None]
  - SWOLLEN TONGUE [None]
